FAERS Safety Report 19979293 (Version 1)
Quarter: 2021Q4

REPORT INFORMATION
  Report Type: Spontaneous
  Country: US (occurrence: US)
  Receive Date: 20211021
  Receipt Date: 20211021
  Transmission Date: 20220303
  Serious: Yes (Other)
  Sender: FDA-Public Use
  Company Number: None

PATIENT
  Age: 41 Year
  Sex: Male
  Weight: 81 kg

DRUGS (3)
  1. ARTNATURALS HAND SANITIZER [Suspect]
     Active Substance: ALCOHOL
     Indication: COVID-19 prophylaxis
     Route: 061
  2. SIMVASTATIN [Concomitant]
     Active Substance: SIMVASTATIN
  3. GEMFIBROZIL [Concomitant]
     Active Substance: GEMFIBROZIL

REACTIONS (2)
  - Purpura [None]
  - Recalled product [None]

NARRATIVE: CASE EVENT DATE: 20210416
